FAERS Safety Report 19488989 (Version 1)
Quarter: 2021Q3

REPORT INFORMATION
  Report Type: Other
  Country: FR (occurrence: FR)
  Receive Date: 20210703
  Receipt Date: 20210703
  Transmission Date: 20211014
  Serious: Yes (Other)
  Sender: FDA-Public Use
  Company Number: FR-CADILA HEALTHCARE LIMITED-FR-ZYDUS-067314

PATIENT

DRUGS (1)
  1. EXEMESTANE. [Suspect]
     Active Substance: EXEMESTANE
     Indication: BREAST CANCER
     Dosage: 2 DOSAGE FORM, SINGLE SOCKET
     Route: 048
     Dates: start: 20210606

REACTIONS (4)
  - Myalgia [Recovering/Resolving]
  - Arthralgia [Recovering/Resolving]
  - Wrong dose [Recovering/Resolving]
  - Condition aggravated [Recovering/Resolving]

NARRATIVE: CASE EVENT DATE: 20210607
